FAERS Safety Report 24000304 (Version 1)
Quarter: 2024Q2

REPORT INFORMATION
  Report Type: Spontaneous
  Country: PL (occurrence: PL)
  Receive Date: 20240621
  Receipt Date: 20240621
  Transmission Date: 20240716
  Serious: Yes (Other)
  Sender: FDA-Public Use
  Company Number: PL-ACRAF SpA-2024-034836

PATIENT

DRUGS (6)
  1. XCOPRI [Suspect]
     Active Substance: CENOBAMATE
     Indication: Temporal lobe epilepsy
     Dosage: 250 MILLIGRAM
     Route: 048
     Dates: start: 20230522
  2. XCOPRI [Suspect]
     Active Substance: CENOBAMATE
     Dosage: 200 MILLIGRAM
     Route: 048
  3. BRIVARACETAM [Concomitant]
     Active Substance: BRIVARACETAM
     Indication: Product used for unknown indication
     Dosage: 200 MILLIGRAM, QD
     Route: 065
  4. CARBAMAZEPINE [Concomitant]
     Active Substance: CARBAMAZEPINE
     Indication: Product used for unknown indication
     Dosage: 450 MILLIGRAM, QD
     Route: 065
  5. SERTRALINE HYDROCHLORIDE [Concomitant]
     Active Substance: SERTRALINE HYDROCHLORIDE
     Indication: Product used for unknown indication
     Dosage: UNK
     Route: 065
  6. CHLORPROTHIXENE [Concomitant]
     Active Substance: CHLORPROTHIXENE
     Indication: Product used for unknown indication
     Dosage: UNK
     Route: 065

REACTIONS (2)
  - Exposure during pregnancy [Recovered/Resolved]
  - Abortion spontaneous [Unknown]
